FAERS Safety Report 20350177 (Version 1)
Quarter: 2022Q1

REPORT INFORMATION
  Report Type: Spontaneous
  Country: US (occurrence: None)
  Receive Date: 20220119
  Receipt Date: 20220119
  Transmission Date: 20220423
  Serious: Yes (Hospitalization)
  Sender: FDA-Public Use
  Company Number: None

PATIENT
  Age: 79 Year
  Sex: Female
  Weight: 74.0 kg

DRUGS (9)
  1. VENETOCLAX [Suspect]
     Active Substance: VENETOCLAX
     Indication: Chronic lymphocytic leukaemia
     Dosage: FREQUENCY : DAILY;?
     Route: 048
     Dates: start: 20211201
  2. TRAZODONE (DESYREL) [Concomitant]
  3. ELIQUIS [Concomitant]
     Active Substance: APIXABAN
  4. CRESTOR [Concomitant]
     Active Substance: ROSUVASTATIN CALCIUM
  5. LEVOTHYROXINE (SYNTHROID, LEVOTRHOID0 [Concomitant]
  6. SPIRONOLACTONE (ALDACTONE) [Concomitant]
  7. METOPROLOL SUCCINATE (TOPROL-XL) [Concomitant]
  8. VANCOMYCIN (VANCOCIN) [Concomitant]
  9. CEFEPIME (MAXIPIME) [Concomitant]

REACTIONS (3)
  - Dyspnoea [None]
  - Atrial fibrillation [None]
  - Ejection fraction decreased [None]

NARRATIVE: CASE EVENT DATE: 20220103
